FAERS Safety Report 8998442 (Version 1)
Quarter: 2013Q1

REPORT INFORMATION
  Report Type: Spontaneous
  Country: BR (occurrence: BR)
  Receive Date: 20130103
  Receipt Date: 20130103
  Transmission Date: 20140127
  Serious: Yes (Other)
  Sender: FDA-Public Use
  Company Number: BR-PFIZER INC-2013001293

PATIENT
  Age: 60 Year
  Sex: Female
  Weight: 65 kg

DRUGS (1)
  1. GEODON [Suspect]
     Indication: ANXIETY DISORDER
     Dosage: UNK
     Route: 048

REACTIONS (3)
  - Bladder prolapse [Unknown]
  - Faecal incontinence [Unknown]
  - Muscle spasms [Unknown]
